FAERS Safety Report 5243140-X (Version None)
Quarter: 2007Q1

REPORT INFORMATION
  Report Type: 
  Country: None (occurrence: None)
  Receive Date: 20070221
  Receipt Date: 20070208
  Transmission Date: 20070707
  Serious: Yes (Other)
  Sender: FDA-Public Use
  Company Number: AU-SHR-AU-2007-004302

PATIENT
  Sex: Female

DRUGS (2)
  1. MABCAMPATH 30 [Suspect]
     Dosage: UNK AMP, UNK
     Route: 058
  2. MABCAMPATH 30 [Suspect]
     Dosage: UNK AMP, UNK
     Route: 058

REACTIONS (2)
  - INJECTION SITE PAIN [None]
  - INJECTION SITE REACTION [None]
